FAERS Safety Report 15043491 (Version 3)
Quarter: 2019Q1

REPORT INFORMATION
  Report Type: Spontaneous
  Country: US (occurrence: US)
  Receive Date: 20180621
  Receipt Date: 20190308
  Transmission Date: 20190417
  Serious: Yes (Other)
  Sender: FDA-Public Use
  Company Number: US-SA-2018SA124869

PATIENT
  Age: 43 Year
  Sex: Female
  Weight: 48.9 kg

DRUGS (28)
  1. VITAMIN D3 [Concomitant]
     Active Substance: CHOLECALCIFEROL
  2. AZITHROMYCIN ANHYDROUS. [Concomitant]
     Active Substance: AZITHROMYCIN ANHYDROUS
  3. PROZAC [Concomitant]
     Active Substance: FLUOXETINE HYDROCHLORIDE
  4. TOPAMAX [Concomitant]
     Active Substance: TOPIRAMATE
  5. VISTARIL [HYDROXYZINE HYDROCHLORIDE] [Concomitant]
  6. BOTOX [Concomitant]
     Active Substance: ONABOTULINUMTOXINA
  7. AMITRIPTYLINE [Concomitant]
     Active Substance: AMITRIPTYLINE
  8. OXYCODONE [Concomitant]
     Active Substance: OXYCODONE
  9. VENTOLIN HFA [Concomitant]
     Active Substance: ALBUTEROL SULFATE
  10. CEFDINIR. [Concomitant]
     Active Substance: CEFDINIR
  11. DONEPEZIL HYDROCHLORIDE. [Concomitant]
     Active Substance: DONEPEZIL HYDROCHLORIDE
  12. TEMAZEPAM. [Concomitant]
     Active Substance: TEMAZEPAM
  13. CALCIUM + MAGNESIUM + ZINK [Concomitant]
  14. MIDODRINE [Concomitant]
     Active Substance: MIDODRINE
  15. CARISOPRODOL. [Concomitant]
     Active Substance: CARISOPRODOL
  16. ARIPIPRAZOLE. [Concomitant]
     Active Substance: ARIPIPRAZOLE
  17. ALBUTEROL SULFATE. [Concomitant]
     Active Substance: ALBUTEROL SULFATE
  18. SELENIUM [Concomitant]
     Active Substance: SELENIUM
  19. ULTRAM [Concomitant]
     Active Substance: TRAMADOL HYDROCHLORIDE
  20. PRIVIGEN [Concomitant]
     Active Substance: HUMAN IMMUNOGLOBULIN G
  21. PREDNISONE. [Concomitant]
     Active Substance: PREDNISONE
  22. VITAMIN B12 [Concomitant]
     Active Substance: CYANOCOBALAMIN
  23. VITAMIN C [Concomitant]
     Active Substance: ASCORBIC ACID
  24. AUBAGIO [Suspect]
     Active Substance: TERIFLUNOMIDE
     Indication: MULTIPLE SCLEROSIS
     Dosage: 14 MG,QD
     Route: 048
     Dates: start: 20180405
  25. KLONOPIN [Concomitant]
     Active Substance: CLONAZEPAM
  26. MILK THISTLE [SILYBUM MARIANUM] [Concomitant]
  27. VICODIN [Concomitant]
     Active Substance: ACETAMINOPHEN\HYDROCODONE BITARTRATE
  28. ONDANSETRON [Concomitant]
     Active Substance: ONDANSETRON

REACTIONS (7)
  - Alopecia [Not Recovered/Not Resolved]
  - Neuropathy peripheral [Unknown]
  - Anger [Unknown]
  - Hypotension [Unknown]
  - Oral mucosal blistering [Unknown]
  - Depression [Unknown]
  - Decreased interest [Unknown]
